FAERS Safety Report 8008234 (Version 2)
Quarter: 2013Q1

REPORT INFORMATION
  Report Type: Spontaneous
  Country: US (occurrence: US)
  Receive Date: 20110624
  Receipt Date: 20130305
  Transmission Date: 20140127
  Serious: Yes (Death, Other)
  Sender: FDA-Public Use
  Company Number: US-ENDO PHARMACEUTICALS INC.-OPIR20110032

PATIENT
  Age: 17 Year
  Sex: Male

DRUGS (5)
  1. OPANA [Suspect]
     Indication: DRUG ABUSE
     Dosage: UNK
     Route: 048
  2. OPANA [Suspect]
     Dosage: UNK
  3. OXYCODONE HCL [Suspect]
     Indication: DRUG ABUSE
     Dosage: UNK
     Route: 065
  4. XANAX [Suspect]
     Indication: DRUG ABUSE
     Dosage: UNK
  5. HEROIN [Suspect]
     Indication: DRUG ABUSE
     Dosage: UNK

REACTIONS (7)
  - Toxicity to various agents [None]
  - Pneumonia [None]
  - Overdose [None]
  - Wrong technique in drug usage process [None]
  - Incorrect route of drug administration [None]
  - Drug abuse [None]
  - Drug diversion [Unknown]
